FAERS Safety Report 13655377 (Version 1)
Quarter: 2017Q2

REPORT INFORMATION
  Report Type: Spontaneous
  Country: US (occurrence: US)
  Receive Date: 20170614
  Receipt Date: 20170614
  Transmission Date: 20170830
  Serious: Yes (Hospitalization)
  Sender: FDA-Public Use
  Company Number: None

PATIENT
  Age: 85 Year
  Sex: Male

DRUGS (1)
  1. WARFARIN [Suspect]
     Active Substance: WARFARIN
     Indication: ATRIAL FIBRILLATION
     Dates: start: 20120109, end: 20161128

REACTIONS (5)
  - International normalised ratio increased [None]
  - Haemoglobin decreased [None]
  - Gastrointestinal haemorrhage [None]
  - Therapy cessation [None]
  - Haemorrhage [None]

NARRATIVE: CASE EVENT DATE: 20161116
